FAERS Safety Report 7622787-7 (Version None)
Quarter: 2011Q3

REPORT INFORMATION
  Report Type: 
  Country: None (occurrence: None)
  Receive Date: 20110712
  Receipt Date: 20110630
  Transmission Date: 20111222
  Serious: Yes (Hospitalization, Other)
  Sender: FDA-Public Use
  Company Number: DKLU1071753

PATIENT
  Age: 2 Year
  Sex: Male

DRUGS (7)
  1. SABRIL [Suspect]
     Indication: INFANTILE SPASMS
     Dosage: 500 MG MILLIGRAM(S), 2 IN 1 D, ORAL
     Route: 048
     Dates: start: 20091014
  2. OXYCONTIN [Concomitant]
  3. VITAMIN SUPPLEMENT (VIGRAN) [Concomitant]
  4. KEPPRA [Concomitant]
  5. BANZEL (RUFINAMIDE) [Concomitant]
  6. BACLAFEN (BACLOFEN) [Concomitant]
  7. DIASTAT [Concomitant]

REACTIONS (6)
  - SEPSIS [None]
  - PNEUMONIA [None]
  - OSTEOMYELITIS [None]
  - PANCREATITIS [None]
  - CONVULSION [None]
  - VOMITING [None]
